FAERS Safety Report 9024281 (Version 5)
Quarter: 2013Q1

REPORT INFORMATION
  Report Type: Spontaneous
  Country: AU (occurrence: AU)
  Receive Date: 20130121
  Receipt Date: 20130221
  Transmission Date: 20140127
  Serious: Yes (Hospitalization, Other)
  Sender: FDA-Public Use
  Company Number: PHHY2013AU004898

PATIENT
  Age: 73 None
  Sex: Female

DRUGS (5)
  1. ACLASTA [Suspect]
     Indication: OSTEOPOROSIS
     Dosage: 5 MG, UNK
     Route: 042
     Dates: start: 20101201
  2. ACLASTA [Suspect]
     Dosage: 5 MG, UNK
     Route: 042
     Dates: start: 20111216, end: 20121115
  3. CRESTOR [Concomitant]
     Indication: BLOOD CHOLESTEROL
     Dosage: 10 MG DAILY
     Route: 048
     Dates: start: 20070117
  4. NEXUM [Concomitant]
     Dosage: 20 MG DAILY
     Route: 048
     Dates: start: 20101027
  5. OROXINE [Concomitant]
     Dosage: 100 MG DAILY
     Route: 048
     Dates: start: 20060201

REACTIONS (6)
  - Gastrointestinal infection [Recovering/Resolving]
  - Lower respiratory tract infection [Recovering/Resolving]
  - Cough [Recovered/Resolved]
  - Oropharyngeal pain [Recovered/Resolved]
  - Asthenia [Recovered/Resolved]
  - Lethargy [Recovering/Resolving]
